FAERS Safety Report 22314794 (Version 1)
Quarter: 2023Q2

REPORT INFORMATION
  Report Type: Spontaneous
  Country: US (occurrence: None)
  Receive Date: 20230511
  Receipt Date: 20230511
  Transmission Date: 20230721
  Serious: Yes (Other)
  Sender: FDA-Public Use
  Company Number: None

PATIENT
  Age: 30 Year
  Sex: Female
  Weight: 65.7 kg

DRUGS (2)
  1. TIROSINT [Suspect]
     Active Substance: LEVOTHYROXINE SODIUM
     Indication: Hypothyroidism
     Dosage: OTHER STRENGTH : MCG;?OTHER QUANTITY : 30 TABLET(S);?
     Route: 048
  2. CYTOMEL [Concomitant]

REACTIONS (13)
  - Headache [None]
  - Chest pain [None]
  - Palpitations [None]
  - Insomnia [None]
  - Tachycardia [None]
  - Restless legs syndrome [None]
  - Anxiety [None]
  - Decreased appetite [None]
  - Loss of libido [None]
  - Weight decreased [None]
  - Heart rate increased [None]
  - Loss of personal independence in daily activities [None]
  - Therapy cessation [None]

NARRATIVE: CASE EVENT DATE: 20230510
